FAERS Safety Report 4885418-5 (Version None)
Quarter: 2005Q4

REPORT INFORMATION
  Report Type: 
  Country: None (occurrence: None)
  Receive Date: 20051220
  Receipt Date: 20051018
  Transmission Date: 20060501
  Serious: Yes (Other)
  Sender: FDA-Public Use
  Company Number: HQWYE149021OCT05

PATIENT
  Sex: Female

DRUGS (1)
  1. EFFEXOR XR [Suspect]
     Indication: DEPRESSION
     Dosage: 150 MG, FREQUENCY
     Dates: start: 20000101

REACTIONS (2)
  - CRYING [None]
  - DRUG WITHDRAWAL SYNDROME [None]
